FAERS Safety Report 13559165 (Version 1)
Quarter: 2020Q3

REPORT INFORMATION
  Report Type: Spontaneous
  Country: CN (occurrence: CN)
  Receive Date: 20170518
  Receipt Date: 20170518
  Transmission Date: 20201104
  Serious: Yes (Hospitalization)
  Sender: FDA-Public Use
  Company Number: CN-ROCHE-1936029

PATIENT
  Age: 33 Year
  Sex: Female

DRUGS (1)
  1. IBANDRONIC ACID. [Suspect]
     Active Substance: IBANDRONIC ACID
     Indication: BONE GIANT CELL TUMOUR
     Dosage: 120 MINUTES INTRAVENOUS INFUSION WAS ADMINISTERED EVERY 4 WEEKS OVER A 12 MONTHS PERIOD.
     Route: 042

REACTIONS (1)
  - Wound dehiscence [Recovering/Resolving]
